FAERS Safety Report 9007504 (Version 1)
Quarter: 2013Q1

REPORT INFORMATION
  Report Type: Spontaneous
  Country: US (occurrence: US)
  Receive Date: 20130111
  Receipt Date: 20130111
  Transmission Date: 20140127
  Serious: Yes (Other)
  Sender: FDA-Public Use
  Company Number: US-009507513-1301XAA003206

PATIENT
  Age: 1 Year
  Sex: Male

DRUGS (4)
  1. SINGULAIR [Suspect]
     Route: 048
  2. BUDESONIDE [Suspect]
  3. ALBUTEROL [Suspect]
     Route: 055
  4. RECTODELT [Concomitant]

REACTIONS (5)
  - Pneumonia viral [Unknown]
  - Dyspnoea [Unknown]
  - Cyanosis [Unknown]
  - Cough [Unknown]
  - Agitation [Unknown]
